FAERS Safety Report 17742013 (Version 1)
Quarter: 2020Q2

REPORT INFORMATION
  Report Type: Report from Study
  Country: None (occurrence: US)
  Receive Date: 20200505
  Receipt Date: 20200505
  Transmission Date: 20200714
  Serious: Yes (Other)
  Sender: FDA-Public Use
  Company Number: US-ABBVIE-20K-163-3341510-00

PATIENT
  Sex: Female

DRUGS (2)
  1. HUMIRA [Suspect]
     Active Substance: ADALIMUMAB
     Route: 058
     Dates: start: 2020
  2. HUMIRA [Suspect]
     Active Substance: ADALIMUMAB
     Indication: RHEUMATOID ARTHRITIS
     Route: 058
     Dates: start: 20200127, end: 2020

REACTIONS (18)
  - Depression [Unknown]
  - Headache [Unknown]
  - Fatigue [Not Recovered/Not Resolved]
  - Loss of personal independence in daily activities [Unknown]
  - Impaired self-care [Unknown]
  - Joint stiffness [Unknown]
  - Joint swelling [Unknown]
  - Anxiety [Unknown]
  - Gout [Recovered/Resolved]
  - Aphthous ulcer [Recovered/Resolved]
  - Illusion [Unknown]
  - Blindness [Unknown]
  - Adverse food reaction [Recovered/Resolved]
  - Peripheral swelling [Not Recovered/Not Resolved]
  - Arthralgia [Unknown]
  - Night sweats [Unknown]
  - Wheelchair user [Unknown]
  - Pain [Recovering/Resolving]

NARRATIVE: CASE EVENT DATE: 2020
